FAERS Safety Report 8475728-7 (Version None)
Quarter: 2012Q2

REPORT INFORMATION
  Report Type: 
  Country: None (occurrence: None)
  Receive Date: 20120628
  Receipt Date: 20120621
  Transmission Date: 20120825
  Serious: Yes (Other)
  Sender: FDA-Public Use
  Company Number: FR-GLAXOSMITHKLINE-B0810015A

PATIENT
  Sex: Male

DRUGS (1)
  1. REQUIP [Suspect]
     Indication: PARKINSON'S DISEASE
     Route: 065
     Dates: start: 19980101, end: 20071001

REACTIONS (9)
  - HYPOMANIA [None]
  - PATHOLOGICAL GAMBLING [None]
  - DOPAMINE DYSREGULATION SYNDROME [None]
  - SUDDEN ONSET OF SLEEP [None]
  - HYPERSEXUALITY [None]
  - APATHY [None]
  - COMPULSIVE SHOPPING [None]
  - ABNORMAL BEHAVIOUR [None]
  - THEFT [None]
